FAERS Safety Report 4815750-2 (Version None)
Quarter: 2005Q4

REPORT INFORMATION
  Report Type: 
  Country: None (occurrence: None)
  Receive Date: 20051031
  Receipt Date: 20051024
  Transmission Date: 20060501
  Serious: Yes (Life-Threatening)
  Sender: FDA-Public Use
  Company Number: 2005AC01677

PATIENT
  Age: 71 Year
  Sex: Male

DRUGS (6)
  1. MEPIVACAINE HCL [Suspect]
     Indication: THROMBECTOMY
     Route: 008
  2. MEPIVACAINE HCL [Suspect]
     Indication: LOCAL ANAESTHESIA
     Route: 008
  3. MEPIVACAINE HCL [Suspect]
     Indication: ARTERIAL BYPASS OPERATION
     Route: 008
  4. INSULIN [Concomitant]
     Route: 058
  5. NIFEDIPINE [Concomitant]
     Route: 048
  6. SALBUTAMOL [Concomitant]
     Route: 055

REACTIONS (8)
  - ACQUIRED DIAPHRAGMATIC EVENTRATION [None]
  - BLOOD PRESSURE DECREASED [None]
  - DELAYED RECOVERY FROM ANAESTHESIA [None]
  - DYSPNOEA [None]
  - HORNER'S SYNDROME [None]
  - OXYGEN SATURATION DECREASED [None]
  - PARESIS [None]
  - SENSORY LEVEL ABNORMAL [None]
